FAERS Safety Report 6857451-5 (Version None)
Quarter: 2010Q3

REPORT INFORMATION
  Report Type: 
  Country: None (occurrence: None)
  Receive Date: 20100719
  Receipt Date: 20080122
  Transmission Date: 20110219
  Serious: No
  Sender: FDA-Public Use
  Company Number: US-PFIZER INC-2008008945

PATIENT
  Sex: Female

DRUGS (1)
  1. CHANTIX [Suspect]

REACTIONS (11)
  - ASTHENIA [None]
  - DEHYDRATION [None]
  - DEPRESSION [None]
  - DIARRHOEA [None]
  - FEELING JITTERY [None]
  - MALAISE [None]
  - NAUSEA [None]
  - PYREXIA [None]
  - RENAL DISORDER [None]
  - UNEVALUABLE EVENT [None]
  - VOMITING [None]
